FAERS Safety Report 6273420-0 (Version None)
Quarter: 2009Q3

REPORT INFORMATION
  Report Type: 
  Country: None (occurrence: None)
  Receive Date: 20090720
  Receipt Date: 20090708
  Transmission Date: 20100115
  Serious: Yes (Other)
  Sender: FDA-Public Use
  Company Number: PHEH2009US06444

PATIENT
  Sex: Male
  Weight: 68.027 kg

DRUGS (2)
  1. GLEEVEC [Suspect]
     Indication: NEURILEMMOMA MALIGNANT
     Dosage: 400MG DAILY
     Route: 048
     Dates: start: 20090218, end: 20090409
  2. RADIATION THERAPY [Concomitant]

REACTIONS (13)
  - ATELECTASIS [None]
  - BACK PAIN [None]
  - CARDIOMEGALY [None]
  - DISEASE RECURRENCE [None]
  - DRUG INEFFECTIVE [None]
  - ERYTHEMA [None]
  - GROIN ABSCESS [None]
  - INGUINAL HERNIA [None]
  - MALIGNANT NEOPLASM PROGRESSION [None]
  - OEDEMA PERIPHERAL [None]
  - PAIN [None]
  - PNEUMONIA [None]
  - SPINAL DISORDER [None]
